FAERS Safety Report 6694631-6 (Version None)
Quarter: 2010Q2

REPORT INFORMATION
  Report Type: 
  Country: None (occurrence: None)
  Receive Date: 20100423
  Receipt Date: 20100412
  Transmission Date: 20101027
  Serious: Yes (Death, Life-Threatening)
  Sender: FDA-Public Use
  Company Number: BE-PFIZER INC-2006099946

PATIENT
  Age: 54 Year
  Sex: Male
  Weight: 122 kg

DRUGS (17)
  1. SUNITINIB MALATE [Suspect]
     Indication: RENAL CELL CARCINOMA
     Dosage: 50 MG, 1X/DAY
     Route: 048
     Dates: start: 20051220, end: 20051223
  2. SUNITINIB MALATE [Suspect]
     Dosage: 50 MG, 1X/DAY
     Route: 048
     Dates: start: 20060124, end: 20060814
  3. AMOXICILLIN [Concomitant]
     Dosage: UNK
     Dates: start: 20060731, end: 20060809
  4. VALSARTAN [Concomitant]
     Dosage: UNK
     Dates: start: 20010101
  5. KREDEX [Concomitant]
     Dosage: UNK
     Route: 048
     Dates: start: 19990101
  6. ALLOPURINOL [Concomitant]
     Dosage: UNK
     Route: 048
     Dates: start: 19990101
  7. ALPRAZOLAM [Concomitant]
     Dosage: UNK
     Dates: start: 20040101
  8. ESOMEPRAZOLE [Concomitant]
     Dosage: UNK
     Dates: start: 20060102
  9. DOMPERIDONE [Concomitant]
     Dosage: UNK
     Route: 048
     Dates: start: 20060210
  10. ENOXAPARIN SODIUM [Concomitant]
     Dosage: UNK
     Dates: start: 20051224
  11. BACLOFEN [Concomitant]
     Dosage: UNK
     Route: 048
     Dates: start: 20060125
  12. ESCITALOPRAM [Concomitant]
     Dosage: UNK
  13. PARACETAMOL [Concomitant]
     Dosage: UNK
     Dates: start: 20051001
  14. YEAST [Concomitant]
     Dosage: UNK
     Dates: start: 20060210
  15. MICONAZOLE NITRATE [Concomitant]
     Dosage: UNK
     Dates: start: 20060101
  16. ZINC [Concomitant]
     Dosage: UNK
  17. ENOXAPARIN SODIUM [Concomitant]
     Dosage: UNK
     Route: 058
     Dates: start: 20051224

REACTIONS (5)
  - ENCEPHALOPATHY [None]
  - HEPATIC FAILURE [None]
  - MYOCARDITIS [None]
  - PNEUMONIA [None]
  - RENAL FAILURE [None]
